FAERS Safety Report 5429922-X (Version None)
Quarter: 2007Q3

REPORT INFORMATION
  Report Type: 
  Country: None (occurrence: None)
  Receive Date: 20070829
  Receipt Date: 20070820
  Transmission Date: 20080115
  Serious: Yes (Life-Threatening, Hospitalization)
  Sender: FDA-Public Use
  Company Number: SG-PFIZER INC-2007049272

PATIENT
  Sex: Female

DRUGS (4)
  1. SU-011,248 [Suspect]
     Indication: BREAST CANCER
     Route: 048
     Dates: start: 20070507, end: 20070617
  2. ANAREX [Concomitant]
     Route: 048
  3. HIRUDOID [Concomitant]
     Route: 061
  4. PROCODIN [Concomitant]
     Route: 048

REACTIONS (1)
  - PNEUMOTHORAX [None]
